FAERS Safety Report 13265390 (Version 1)
Quarter: 2017Q1

REPORT INFORMATION
  Report Type: Spontaneous
  Country: US (occurrence: US)
  Receive Date: 20170223
  Receipt Date: 20170223
  Transmission Date: 20170428
  Serious: No
  Sender: FDA-Public Use
  Company Number: US-009507513-1702USA002742

PATIENT
  Age: 90 Year
  Sex: Male

DRUGS (9)
  1. FUROSEMIDE. [Concomitant]
     Active Substance: FUROSEMIDE
     Dosage: UNK
  2. BELSOMRA [Suspect]
     Active Substance: SUVOREXANT
     Indication: INSOMNIA
     Dosage: 20 MG/DAY
     Route: 048
     Dates: start: 201701
  3. NEXIUM I.V. [Concomitant]
     Active Substance: ESOMEPRAZOLE SODIUM
     Dosage: UNK
  4. CARVEDILOL. [Concomitant]
     Active Substance: CARVEDILOL
     Dosage: UNK
  5. PROSCAR [Concomitant]
     Active Substance: FINASTERIDE
     Dosage: UNK
  6. SPIRONOLACTONE. [Concomitant]
     Active Substance: SPIRONOLACTONE
     Dosage: UNK
  7. DIGOXIN. [Concomitant]
     Active Substance: DIGOXIN
     Dosage: UNK
  8. LYRICA [Concomitant]
     Active Substance: PREGABALIN
     Dosage: UNK
  9. TAMSULOSIN HYDROCHLORIDE. [Concomitant]
     Active Substance: TAMSULOSIN HYDROCHLORIDE
     Dosage: UNK

REACTIONS (1)
  - Haematuria [Not Recovered/Not Resolved]

NARRATIVE: CASE EVENT DATE: 20170206
